FAERS Safety Report 24067809 (Version 1)
Quarter: 2024Q3

REPORT INFORMATION
  Report Type: Spontaneous
  Country: EG (occurrence: EG)
  Receive Date: 20240710
  Receipt Date: 20240710
  Transmission Date: 20241017
  Serious: Yes (Hospitalization, Other)
  Sender: NOVO NORDISK
  Company Number: EG-NOVOPROD-1247428

PATIENT
  Age: 689 Month
  Sex: Male

DRUGS (3)
  1. INSULIN HUMAN [Suspect]
     Active Substance: INSULIN HUMAN
     Indication: Diabetes mellitus
     Dosage: 50 IU, QD (35U MORNING -15U NIGHT)
     Route: 058
  2. GLUCOPHAGE [Concomitant]
     Active Substance: METFORMIN HYDROCHLORIDE
     Indication: Diabetes mellitus
     Dosage: 1TAB/DAY
     Route: 048
  3. TRENTAL [Concomitant]
     Active Substance: PENTOXIFYLLINE
     Indication: Cardiovascular disorder
     Dosage: 1TAB/DAY BEFORE BED
     Route: 048

REACTIONS (3)
  - Anterior capsule contraction [Unknown]
  - Eye haemorrhage [Unknown]
  - Hyperglycaemia [Not Recovered/Not Resolved]

NARRATIVE: CASE EVENT DATE: 20240103
